FAERS Safety Report 9571158 (Version 1)
Quarter: 2013Q4

REPORT INFORMATION
  Report Type: Spontaneous
  Country: US (occurrence: US)
  Receive Date: 20131001
  Receipt Date: 20131001
  Transmission Date: 20140711
  Serious: Yes (Other)
  Sender: FDA-Public Use
  Company Number: US-BAYER-2013-118156

PATIENT
  Age: 25 Year
  Sex: Female

DRUGS (2)
  1. MIRENA [Suspect]
     Indication: CONTRACEPTION
     Dosage: 20 MCG/24HR, CONT
     Route: 015
     Dates: start: 20130806, end: 20130916
  2. MIRENA [Suspect]
     Indication: MENORRHAGIA

REACTIONS (3)
  - Genital haemorrhage [None]
  - Abdominal pain lower [None]
  - Device dislocation [Recovered/Resolved]
